FAERS Safety Report 21778454 (Version 1)
Quarter: 2022Q4

REPORT INFORMATION
  Report Type: Spontaneous
  Country: CH (occurrence: CH)
  Receive Date: 20221226
  Receipt Date: 20221226
  Transmission Date: 20230113
  Serious: Yes (Hospitalization)
  Sender: FDA-Public Use
  Company Number: None

PATIENT
  Age: 75 Year
  Sex: Male

DRUGS (1)
  1. KEYTRUDA [Suspect]
     Active Substance: PEMBROLIZUMAB
     Dosage: KEYTRUDA? 200 MG, D1 Q21
     Route: 041
     Dates: end: 202211

REACTIONS (1)
  - Stiff person syndrome [Recovering/Resolving]

NARRATIVE: CASE EVENT DATE: 20221101
